FAERS Safety Report 10061061 (Version 1)
Quarter: 2014Q2

REPORT INFORMATION
  Report Type: Report from Study
  Country: US (occurrence: US)
  Receive Date: 20140405
  Receipt Date: 20140405
  Transmission Date: 20141212
  Serious: Yes (Life-Threatening, Hospitalization)
  Sender: FDA-Public Use
  Company Number: US-TEVA-473558USA

PATIENT
  Age: 2 Year
  Sex: Female

DRUGS (6)
  1. LESTAURTINIB [Suspect]
  2. MERCAPTOPURINE [Suspect]
  3. METHOTREXATE [Suspect]
     Route: 037
  4. METHOTREXATE [Suspect]
     Route: 048
  5. VINCRISTINE [Suspect]
  6. DEXAMETHASONE [Suspect]

REACTIONS (1)
  - T-lymphocyte count decreased [Not Recovered/Not Resolved]
